FAERS Safety Report 4598678-5 (Version None)
Quarter: 2005Q1

REPORT INFORMATION
  Report Type: 
  Country: None (occurrence: None)
  Receive Date: 20050304
  Receipt Date: 20050221
  Transmission Date: 20050727
  Serious: Yes (Hospitalization)
  Sender: FDA-Public Use
  Company Number: JAFRA37402

PATIENT
  Age: 29 Year
  Sex: Female

DRUGS (2)
  1. IMODIUM [Suspect]
     Route: 049
     Dates: start: 19890924
  2. ANTIBIOTIQUES [Concomitant]
     Dates: start: 19890924

REACTIONS (2)
  - INTESTINAL PERFORATION [None]
  - PERITONITIS [None]
